FAERS Safety Report 5974284-2 (Version None)
Quarter: 2008Q4

REPORT INFORMATION
  Report Type: 
  Country: None (occurrence: None)
  Receive Date: 20081201
  Receipt Date: 20081128
  Transmission Date: 20090506
  Serious: Yes (Other)
  Sender: FDA-Public Use
  Company Number: US-PFIZER INC-2008020428

PATIENT
  Sex: Male
  Weight: 89.4 kg

DRUGS (7)
  1. CHANTIX [Suspect]
     Indication: TOBACCO USER
     Dates: start: 20070905
  2. LISINOPRIL [Concomitant]
  3. COUMADIN [Concomitant]
  4. METOPROLOL TARTRATE [Concomitant]
  5. NITROGLYCERIN [Concomitant]
     Indication: CHEST PAIN
     Route: 060
  6. LORAZEPAM [Concomitant]
     Indication: GENERALISED ANXIETY DISORDER
  7. SIMVASTATIN [Concomitant]

REACTIONS (11)
  - AGGRESSION [None]
  - ANGER [None]
  - BLOOD PRESSURE INCREASED [None]
  - CARDIAC PACEMAKER REVISION [None]
  - CONFUSIONAL STATE [None]
  - HALLUCINATION [None]
  - IMPLANT SITE HAEMATOMA [None]
  - MEMORY IMPAIRMENT [None]
  - STRESS [None]
  - SUICIDAL IDEATION [None]
  - TOBACCO USER [None]
